FAERS Safety Report 22020148 (Version 1)
Quarter: 2023Q1

REPORT INFORMATION
  Report Type: Spontaneous
  Country: US (occurrence: None)
  Receive Date: 20230217
  Receipt Date: 20230217
  Transmission Date: 20230418
  Serious: Yes (Hospitalization)
  Sender: FDA-Public Use
  Company Number: None

PATIENT
  Age: 42 Year
  Sex: Male
  Weight: 79.83 kg

DRUGS (9)
  1. CARBAMAZEPINE [Suspect]
     Active Substance: CARBAMAZEPINE
     Indication: Mood swings
     Dosage: OTHER FREQUENCY : 200MG AM/ 400MG HS;?
     Route: 048
     Dates: start: 20221221, end: 20230202
  2. CARBAMAZEPINE [Concomitant]
     Active Substance: CARBAMAZEPINE
     Dates: start: 20221221, end: 20230202
  3. ASCORBIC ACID [Concomitant]
     Active Substance: ASCORBIC ACID
     Dates: start: 20230125, end: 20230210
  4. choilecalciferol [Concomitant]
     Dates: start: 20221109, end: 20230210
  5. FAMOTIDINE [Concomitant]
     Active Substance: FAMOTIDINE
     Dates: start: 20230125, end: 20230203
  6. LEVOFLOXACIN [Concomitant]
     Active Substance: LEVOFLOXACIN
     Dates: start: 20230130, end: 20230203
  7. OLANZAPINE [Concomitant]
     Active Substance: OLANZAPINE
     Dates: start: 20221221, end: 20230210
  8. PREDNISONE [Concomitant]
     Active Substance: PREDNISONE
     Dates: start: 20230123, end: 20230127
  9. ZINC SULFATE [Concomitant]
     Active Substance: ZINC SULFATE
     Dates: start: 20230125, end: 20230210

REACTIONS (5)
  - Tachycardia [None]
  - Hypotension [None]
  - Blood alkaline phosphatase increased [None]
  - Aspartate aminotransferase increased [None]
  - Alanine aminotransferase increased [None]

NARRATIVE: CASE EVENT DATE: 20230203
